FAERS Safety Report 10187009 (Version 2)
Quarter: 2014Q2

REPORT INFORMATION
  Report Type: Spontaneous
  Country: JP (occurrence: JP)
  Receive Date: 20140522
  Receipt Date: 20140607
  Transmission Date: 20141212
  Serious: Yes (Death, Life-Threatening, Other)
  Sender: FDA-Public Use
  Company Number: JP-009507513-1405JPN008114

PATIENT
  Age: 57 Year
  Sex: Female
  Weight: 46 kg

DRUGS (34)
  1. CANCIDAS FOR INTRAVENOUS DRIP INFUSION 50MG [Suspect]
     Indication: FEBRILE NEUTROPENIA
     Dosage: 50 MG, QD
     Route: 041
     Dates: start: 20140410, end: 20140422
  2. CANCIDAS FOR INTRAVENOUS DRIP INFUSION 70MG [Suspect]
     Indication: FEBRILE NEUTROPENIA
     Dosage: 70 MG, QD
     Route: 041
     Dates: start: 20140409, end: 20140409
  3. MICAFUNGIN SODIUM [Concomitant]
     Indication: FEBRILE NEUTROPENIA
     Dosage: 50 MG, DIVIDED DOSE FREQUENCY UNKNOWN
     Route: 041
     Dates: start: 20140404, end: 20140409
  4. ZOSYN [Concomitant]
     Indication: FEBRILE NEUTROPENIA
     Dosage: 4.5 G, TID
     Route: 051
     Dates: start: 20140407, end: 20140411
  5. GRANISETRON [Concomitant]
     Indication: PREMEDICATION
     Dosage: 3 MG, QD
     Route: 051
     Dates: start: 20140409, end: 20140409
  6. PROGRAF [Concomitant]
     Indication: ADULT T-CELL LYMPHOMA/LEUKAEMIA
     Dosage: 2 MG, BID
     Route: 041
     Dates: start: 20140409, end: 20140429
  7. POLARAMINE INJECTION 5MG [Concomitant]
     Indication: PREMEDICATION
     Dosage: 5 MG, QD
     Route: 051
     Dates: start: 20140409, end: 20140428
  8. INOVAN (DOPAMINE HYDROCHLORIDE) [Concomitant]
     Indication: ADULT T-CELL LYMPHOMA/LEUKAEMIA
     Dosage: 50 ML, BID
     Route: 042
     Dates: start: 20140409, end: 20140413
  9. ATARAX (HYDROXYZINE HYDROCHLORIDE) [Concomitant]
     Indication: PREMEDICATION
     Dosage: 25 MG, QD
     Route: 051
     Dates: start: 20140409, end: 20140409
  10. EPINEPHRINE [Concomitant]
     Indication: CARDIAC FAILURE ACUTE
     Dosage: 3MG, UNK, AS OCCASION ARISES
     Route: 051
     Dates: start: 20140411, end: 20140429
  11. PROPOFOL [Concomitant]
     Indication: CARDIAC FAILURE ACUTE
     Dosage: 500 MG, 5 TIMES PER DAY
     Route: 042
     Dates: start: 20140411, end: 20140429
  12. METHOTREXATE [Concomitant]
     Indication: ADULT T-CELL LYMPHOMA/LEUKAEMIA
     Dosage: 9MG, UNK, AS OCCASION ARISES
     Route: 051
     Dates: start: 20140411, end: 20140416
  13. MINOCYCLINE HYDROCHLORIDE [Concomitant]
     Indication: INFECTION PROPHYLAXIS
     Dosage: 100 MG, QD
     Route: 041
     Dates: start: 20140416, end: 20140422
  14. MEROPEN [Concomitant]
     Indication: INFECTION PROPHYLAXIS
     Dosage: 500 MG, TID
     Route: 041
     Dates: start: 20140411, end: 20140421
  15. FINIBAX [Concomitant]
     Indication: INFECTION PROPHYLAXIS
     Dosage: 500 MG, TID
     Route: 041
     Dates: start: 20140422, end: 20140428
  16. ACICLOVIN [Concomitant]
     Indication: ANTIVIRAL PROPHYLAXIS
     Dosage: 250 MG, QD
     Route: 041
     Dates: start: 20140411, end: 20140424
  17. ROPION [Concomitant]
     Indication: PYREXIA
     Dosage: 25 MG, QD
     Route: 042
     Dates: start: 20140413, end: 20140414
  18. TARGOCID [Concomitant]
     Indication: INFECTION PROPHYLAXIS
     Dosage: 600 MG, BID
     Route: 041
     Dates: start: 20140414, end: 20140415
  19. TARGOCID [Concomitant]
     Indication: FEBRILE NEUTROPENIA
     Dosage: 300 MG, QD
     Route: 041
     Dates: start: 20140416, end: 20140428
  20. ALBUMIN HUMAN [Concomitant]
     Indication: ADULT T-CELL LYMPHOMA/LEUKAEMIA
     Dosage: 50 ML, QD
     Route: 051
     Dates: start: 20140415, end: 20140415
  21. GLYCEREB [Concomitant]
     Indication: POSTOPERATIVE CARE
     Dosage: 200 ML, QD
     Route: 041
     Dates: start: 20140409, end: 20140409
  22. MIDAZOLAM [Concomitant]
     Indication: CARDIAC FAILURE ACUTE
     Dosage: 100MG, UNK, AS OCCASION ARISES
     Route: 051
     Dates: start: 20140411, end: 20140429
  23. POTASSIUM CHLORIDE [Concomitant]
     Indication: PARENTERAL NUTRITION
     Dosage: 40MMOL, UNK, AS OCCASION ARISES
     Route: 051
     Dates: start: 20140409, end: 20140429
  24. PRIMPERAN [Concomitant]
     Indication: VOMITING
     Dosage: 10 MG, BID
     Route: 051
     Dates: start: 20140408, end: 20140411
  25. PRIMPERAN [Concomitant]
     Indication: NAUSEA
  26. FUROSEMIDE [Concomitant]
     Indication: POSTOPERATIVE CARE
     Dosage: 10 MG, QD
     Route: 051
     Dates: start: 20140410, end: 20140410
  27. SOL MELCORT [Concomitant]
     Indication: ADULT T-CELL LYMPHOMA/LEUKAEMIA
     Dosage: 125 MG, QD
     Route: 051
     Dates: start: 20140410, end: 20140410
  28. NEUTROGIN [Concomitant]
     Indication: ADULT T-CELL LYMPHOMA/LEUKAEMIA
     Dosage: 250 MICROGRAM, QD
     Route: 051
     Dates: start: 20140411, end: 20140427
  29. NEO-MINOPHAGEN C [Concomitant]
     Indication: ADULT T-CELL LYMPHOMA/LEUKAEMIA
     Dosage: 40 ML, QD
     Route: 051
     Dates: start: 20140402, end: 20140412
  30. ELNEOPA NO. 1 [Concomitant]
     Indication: PARENTERAL NUTRITION
     Dosage: 1 L, QD
     Route: 041
     Dates: start: 20140411, end: 20140412
  31. MAGNESIUM SULFATE [Concomitant]
     Indication: PARENTERAL NUTRITION
     Dosage: 20 MMOL, QD
     Route: 051
     Dates: start: 20140411, end: 20140429
  32. VITAJECT [Concomitant]
     Indication: PARENTERAL NUTRITION
     Dosage: DAILY DOSE UNKNOWN, QD, SINGLE DOSE: 1 KIT
     Route: 041
     Dates: start: 20140413, end: 20140429
  33. VOLVIX [Concomitant]
     Indication: PARENTERAL NUTRITION
     Dosage: 2 ML, QD
     Route: 041
     Dates: start: 20140413, end: 20140429
  34. HUMULIN R [Concomitant]
     Indication: PROPHYLAXIS
     Dosage: DOSE 10, UNDER 1000 UNIT, AS OCCASION ARISES
     Route: 051
     Dates: start: 20140411, end: 20140427

REACTIONS (3)
  - Adult T-cell lymphoma/leukaemia [Fatal]
  - Cardiac failure acute [Not Recovered/Not Resolved]
  - Drug ineffective [Unknown]
